FAERS Safety Report 6815229-2 (Version None)
Quarter: 2010Q2

REPORT INFORMATION
  Report Type: 
  Country: None (occurrence: None)
  Receive Date: 20100630
  Receipt Date: 20100630
  Transmission Date: 20101027
  Serious: Yes (Hospitalization)
  Sender: FDA-Public Use
  Company Number: None

PATIENT
  Age: 21 Year
  Sex: Female
  Weight: 71.14 kg

DRUGS (1)
  1. IBUPROFEN [Suspect]
     Indication: PAIN
     Dosage: 800 MG BID PO
     Route: 048
     Dates: start: 20090827, end: 20090916

REACTIONS (11)
  - ANAEMIA [None]
  - BLOOD ALBUMIN DECREASED [None]
  - DRUG TOXICITY [None]
  - HAPTOGLOBIN INCREASED [None]
  - HEADACHE [None]
  - MEAN CELL VOLUME DECREASED [None]
  - NAUSEA [None]
  - RENAL FAILURE ACUTE [None]
  - RENAL TUBULAR DISORDER [None]
  - RETICULOCYTE COUNT INCREASED [None]
  - VOMITING [None]
